FAERS Safety Report 17577594 (Version 1)
Quarter: 2020Q1

REPORT INFORMATION
  Report Type: Report from Study
  Country: US (occurrence: US)
  Receive Date: 20200324
  Receipt Date: 20200324
  Transmission Date: 20200409
  Serious: Yes (Death, Life-Threatening, Other)
  Sender: FDA-Public Use
  Company Number: NVSC2020US073124

PATIENT
  Age: 18 Year
  Sex: Female

DRUGS (3)
  1. CYCLOPHOSPHAMIDE. [Concomitant]
     Active Substance: CYCLOPHOSPHAMIDE
     Indication: CHEMOTHERAPY
     Route: 065
  2. FLUDARABINE [Concomitant]
     Active Substance: FLUDARABINE PHOSPHATE
     Indication: CHEMOTHERAPY
     Route: 065
  3. KYMRIAH [Suspect]
     Active Substance: TISAGENLECLEUCEL
     Indication: PRODUCT USED FOR UNKNOWN INDICATION
     Dosage: UNK, ONCE/SINGLE
     Route: 041
     Dates: start: 2018

REACTIONS (15)
  - Cardiac failure [Fatal]
  - Hypogammaglobulinaemia [Unknown]
  - Hypotension [Unknown]
  - Hallucination [Unknown]
  - Neurotoxicity [Unknown]
  - Tremor [Unknown]
  - Hypoxia [Unknown]
  - Tumour lysis syndrome [Unknown]
  - Pyrexia [Unknown]
  - Cytopenia [Unknown]
  - Aphasia [Unknown]
  - Cytokine release syndrome [Recovered/Resolved]
  - Depressed level of consciousness [Unknown]
  - Gastrointestinal toxicity [Unknown]
  - Staphylococcal infection [Unknown]
